FAERS Safety Report 8018980-4 (Version None)
Quarter: 2012Q1

REPORT INFORMATION
  Report Type: 
  Country: None (occurrence: None)
  Receive Date: 20120103
  Receipt Date: 20111227
  Transmission Date: 20120608
  Serious: Yes (Hospitalization)
  Sender: FDA-Public Use
  Company Number: US-BAYER-2011-011382

PATIENT
  Age: 23 Year
  Sex: Female
  Weight: 68.027 kg

DRUGS (4)
  1. YASMIN [Suspect]
     Indication: ORAL CONTRACEPTION
  2. OMEPRAZOLE [Concomitant]
     Dosage: UNK
     Dates: start: 20070101, end: 20080101
  3. YASMIN [Suspect]
     Indication: ACNE
     Dosage: UNK
     Dates: start: 20030101, end: 20080101
  4. NEOCON [Concomitant]
     Dosage: UNK
     Dates: start: 20080812

REACTIONS (3)
  - PAIN [None]
  - CHOLELITHIASIS [None]
  - CHOLECYSTITIS CHRONIC [None]
